FAERS Safety Report 14044345 (Version 1)
Quarter: 2017Q4

REPORT INFORMATION
  Report Type: Spontaneous
  Country: GB (occurrence: GB)
  Receive Date: 20171004
  Receipt Date: 20171004
  Transmission Date: 20180321
  Serious: Yes (Disabling, Other)
  Sender: FDA-Public Use
  Company Number: GB-TEVA-810819ACC

PATIENT
  Age: 45 Year
  Sex: Female
  Weight: 82.55 kg

DRUGS (2)
  1. MIRTAZAPINE. [Suspect]
     Active Substance: MIRTAZAPINE
     Indication: DEPRESSION
     Dosage: 15 MILLIGRAM DAILY; EACH NIGHT.
     Route: 048
     Dates: start: 20170601
  2. SERETIDE [Concomitant]
     Active Substance: FLUTICASONE PROPIONATE\SALMETEROL XINAFOATE
     Indication: ASTHMA

REACTIONS (9)
  - Abdominal pain upper [Unknown]
  - Bladder dilatation [Unknown]
  - Hypoaesthesia oral [Unknown]
  - Pharyngeal hypoaesthesia [Unknown]
  - Diarrhoea [Unknown]
  - Pollakiuria [Unknown]
  - Urinary tract infection [Unknown]
  - Angina pectoris [Unknown]
  - Asthma [Unknown]

NARRATIVE: CASE EVENT DATE: 20170908
